FAERS Safety Report 5467025-9 (Version None)
Quarter: 2007Q3

REPORT INFORMATION
  Report Type: 
  Country: None (occurrence: None)
  Receive Date: 20070920
  Receipt Date: 20070911
  Transmission Date: 20080115
  Serious: Yes (Hospitalization)
  Sender: FDA-Public Use
  Company Number: 2007-160300-NL

PATIENT
  Age: 33 Year
  Sex: Female

DRUGS (1)
  1. ETONOGESTREL (BATCH #::779306/852513) [Suspect]
     Dosage: DF; SUBCUTANEOUS
     Route: 058
     Dates: start: 20060912, end: 20070713

REACTIONS (1)
  - HEPATIC NECROSIS [None]
